FAERS Safety Report 5415029-4 (Version None)
Quarter: 2007Q3

REPORT INFORMATION
  Report Type: 
  Country: None (occurrence: None)
  Receive Date: 20070815
  Receipt Date: 20070810
  Transmission Date: 20080115
  Serious: Yes (Other)
  Sender: FDA-Public Use
  Company Number: PHMT2007CA01623

PATIENT
  Age: 77 Year
  Sex: Female

DRUGS (6)
  1. EXELON [Suspect]
     Indication: DEMENTIA ALZHEIMER'S TYPE
     Dosage: 1.5MG BID
     Route: 048
     Dates: start: 20070404, end: 20070410
  2. ACTONEL [Concomitant]
  3. TYLENOL (CAPLET) [Concomitant]
  4. PANTOPRAZOLE SODIUM [Concomitant]
  5. VITAMIN CAP [Concomitant]
  6. CALCIUM CHLORIDE [Concomitant]

REACTIONS (2)
  - PRESYNCOPE [None]
  - SYNCOPE [None]
